FAERS Safety Report 22686364 (Version 4)
Quarter: 2024Q2

REPORT INFORMATION
  Report Type: Spontaneous
  Country: JP (occurrence: JP)
  Receive Date: 20230710
  Receipt Date: 20240523
  Transmission Date: 20240716
  Serious: Yes (Hospitalization)
  Sender: FDA-Public Use
  Company Number: JP-ROCHE-3384925

PATIENT
  Age: 17 Day
  Sex: Male
  Weight: 4.7 kg

DRUGS (6)
  1. VALCYTE [Suspect]
     Active Substance: VALGANCICLOVIR HYDROCHLORIDE
     Indication: Congenital cytomegalovirus infection
     Dosage: DRY SYRUP; 5000 MILLIGRAM DOSE/W2.0 KG
     Route: 048
     Dates: start: 20230523
  2. VALCYTE [Suspect]
     Active Substance: VALGANCICLOVIR HYDROCHLORIDE
     Dosage: DRY SYRUP
     Route: 048
     Dates: start: 20230822
  3. SODIUM FERROUS CITRATE [Concomitant]
     Active Substance: SODIUM FERROUS CITRATE
  4. ACYCLOVIR [Concomitant]
     Active Substance: ACYCLOVIR
  5. MENATETRENONE [Concomitant]
     Active Substance: MENATETRENONE
  6. URSO [Concomitant]
     Active Substance: URSODIOL

REACTIONS (3)
  - Hepatic function abnormal [Not Recovered/Not Resolved]
  - Anaemia [Recovered/Resolved]
  - Off label use [Unknown]

NARRATIVE: CASE EVENT DATE: 20230523
